FAERS Safety Report 9666402 (Version 2)
Quarter: 2013Q4

REPORT INFORMATION
  Report Type: Spontaneous
  Country: FR (occurrence: FR)
  Receive Date: 20131104
  Receipt Date: 20131118
  Transmission Date: 20140711
  Serious: Yes (Hospitalization)
  Sender: FDA-Public Use
  Company Number: FR-PFIZER INC-2013308174

PATIENT
  Age: 49 Year
  Sex: Female

DRUGS (25)
  1. ADEPAL [Suspect]
     Indication: CONTRACEPTION
     Dosage: UNK
     Dates: start: 1978
  2. MINIDRIL [Suspect]
     Indication: CONTRACEPTION
     Dosage: UNK
     Dates: start: 1986, end: 2012
  3. MEDIATOR [Suspect]
     Indication: DIABETES MELLITUS
     Dosage: 450 MG, DAILY
     Route: 048
     Dates: start: 2008, end: 2010
  4. DERINOX [Suspect]
  5. BI-PROFENID [Suspect]
     Dosage: UNK
  6. POLYDEXA [Concomitant]
  7. RHINATHIOL [Concomitant]
  8. LEXOMIL [Concomitant]
     Dosage: 1 DF, DAILY
     Dates: start: 2002, end: 2002
  9. BYETTA [Concomitant]
  10. VICTOZA [Concomitant]
     Dosage: 1 DF, 1X/DAY
  11. STAGID [Concomitant]
  12. GLUCOPHAGE [Concomitant]
     Dosage: UNK
     Dates: start: 1990, end: 1990
  13. NOVONORM [Concomitant]
     Dosage: UNK
     Dates: start: 1990
  14. INSULIN [Concomitant]
     Dosage: UNK
     Dates: start: 2006
  15. LIPANTHYL [Concomitant]
  16. LUMIGAN [Concomitant]
  17. COMBIGAN [Concomitant]
  18. GINKOR FORT [Concomitant]
     Dosage: 1 DF, 2X/DAY
  19. TEMERIT [Concomitant]
     Dosage: 5 MG, UNK
     Dates: start: 201206
  20. OXYGEN [Concomitant]
  21. NOVOMIX [Concomitant]
  22. LASILIX [Concomitant]
  23. ALDACTONE [Concomitant]
  24. REPAGLINIDE [Concomitant]
  25. NEBIVOLOL [Concomitant]

REACTIONS (1)
  - Pulmonary arterial hypertension [Not Recovered/Not Resolved]
